FAERS Safety Report 6538585-1 (Version None)
Quarter: 2010Q1

REPORT INFORMATION
  Report Type: 
  Country: None (occurrence: None)
  Receive Date: 20100113
  Receipt Date: 20100113
  Transmission Date: 20100710
  Serious: Yes (Disabling)
  Sender: FDA-Public Use
  Company Number: None

PATIENT
  Sex: Female
  Weight: 62.1428 kg

DRUGS (2)
  1. MIRENA [Suspect]
     Indication: CONTRACEPTION
     Dosage: 20MCG PER DAY INTRA-UTERINE
     Route: 015
     Dates: start: 20090707, end: 20100112
  2. MIRENA [Suspect]
     Indication: MENORRHAGIA
     Dosage: 20MCG PER DAY INTRA-UTERINE
     Route: 015
     Dates: start: 20090707, end: 20100112

REACTIONS (8)
  - DEVICE DISLOCATION [None]
  - GAIT DISTURBANCE [None]
  - HAEMORRHAGE [None]
  - IMPAIRED DRIVING ABILITY [None]
  - MENORRHAGIA [None]
  - MUSCLE SPASMS [None]
  - OVARIAN CYST [None]
  - PAIN [None]
